FAERS Safety Report 10806995 (Version 1)
Quarter: 2015Q1

REPORT INFORMATION
  Report Type: Report from Study
  Country: US (occurrence: US)
  Receive Date: 20150217
  Receipt Date: 20150217
  Transmission Date: 20150721
  Serious: No
  Sender: FDA-Public Use
  Company Number: US-ABBVIE-14K-163-1241940-00

PATIENT
  Age: 18 Year
  Sex: Female

DRUGS (5)
  1. PENTASA [Concomitant]
     Active Substance: MESALAMINE
     Indication: CROHN^S DISEASE
  2. HEPATITIS B VACCINE [Suspect]
     Active Substance: HEPATITIS B VIRUS VACCINE
     Indication: PROPHYLAXIS
     Dates: start: 20140521, end: 20140521
  3. HUMIRA [Suspect]
     Active Substance: ADALIMUMAB
     Indication: CROHN^S DISEASE
     Dates: start: 20140423, end: 20140423
  4. HUMIRA [Suspect]
     Active Substance: ADALIMUMAB
     Dates: start: 20140507, end: 20140507
  5. HUMIRA [Suspect]
     Active Substance: ADALIMUMAB
     Dates: start: 20140521

REACTIONS (3)
  - Somnolence [Not Recovered/Not Resolved]
  - Cystitis [Not Recovered/Not Resolved]
  - Lethargy [Not Recovered/Not Resolved]

NARRATIVE: CASE EVENT DATE: 20140517
